FAERS Safety Report 18531584 (Version 2)
Quarter: 2020Q4

REPORT INFORMATION
  Report Type: Spontaneous
  Country: US (occurrence: US)
  Receive Date: 20201123
  Receipt Date: 20201223
  Transmission Date: 20210114
  Serious: No
  Sender: FDA-Public Use
  Company Number: US-ASTRAZENECA-2020SF46762

PATIENT
  Sex: Male

DRUGS (2)
  1. METFORMIN [Concomitant]
     Active Substance: METFORMIN HYDROCHLORIDE
  2. BYDUREON BCISE [Suspect]
     Active Substance: EXENATIDE
     Indication: TYPE 2 DIABETES MELLITUS
     Route: 058
     Dates: start: 202010

REACTIONS (7)
  - Injection site pain [Unknown]
  - Device malfunction [Unknown]
  - Device leakage [Unknown]
  - Intentional device misuse [Unknown]
  - Nausea [Unknown]
  - Injury associated with device [Unknown]
  - Drug delivery system malfunction [Unknown]
